FAERS Safety Report 12744227 (Version 4)
Quarter: 2016Q3

REPORT INFORMATION
  Report Type: Report from Study
  Country: ES (occurrence: ES)
  Receive Date: 20160914
  Receipt Date: 20160930
  Transmission Date: 20161109
  Serious: Yes (Hospitalization, Other)
  Sender: FDA-Public Use
  Company Number: ES-ABBVIE-16K-144-1723156-00

PATIENT
  Age: 76 Year
  Sex: Female

DRUGS (3)
  1. DUODOPA [Suspect]
     Active Substance: CARBIDOPA\LEVODOPA
     Indication: PARKINSON^S DISEASE
     Dosage: MD: 10ML, CD 1.9 ML/H, ED: 1.5 ML
     Route: 050
     Dates: end: 20160905
  2. DUODOPA [Suspect]
     Active Substance: CARBIDOPA\LEVODOPA
     Dosage: MD: 8.5 ML, CD: 1.7 ML/H, ED: 1 ML
     Route: 050
     Dates: start: 20160905
  3. DUODOPA [Suspect]
     Active Substance: CARBIDOPA\LEVODOPA
     Dosage: CD 1.5 ML/H
     Route: 050
     Dates: end: 20160923

REACTIONS (10)
  - Somnolence [Not Recovered/Not Resolved]
  - Post procedural haemorrhage [Not Recovered/Not Resolved]
  - Pneumoperitoneum [Unknown]
  - Back pain [Recovering/Resolving]
  - Dyskinesia [Unknown]
  - Dysphagia [Not Recovered/Not Resolved]
  - Lumbar vertebral fracture [Recovering/Resolving]
  - Fall [Recovering/Resolving]
  - Stoma site discharge [Unknown]
  - Dyskinesia [Recovering/Resolving]

NARRATIVE: CASE EVENT DATE: 201609
